FAERS Safety Report 6071076-3 (Version None)
Quarter: 2009Q1

REPORT INFORMATION
  Report Type: 
  Country: None (occurrence: None)
  Receive Date: 20090209
  Receipt Date: 20080918
  Transmission Date: 20090719
  Serious: No
  Sender: FDA-Public Use
  Company Number: A0748155A

PATIENT
  Age: 31 Year
  Sex: Female

DRUGS (3)
  1. PAXIL CR [Suspect]
     Indication: DEPRESSION
     Dosage: 12.5MG PER DAY
     Route: 048
     Dates: start: 20080201, end: 20080815
  2. PAROXETINE HCL [Suspect]
     Indication: DEPRESSION
     Route: 048
     Dates: start: 20080801
  3. ST. JOHN'S WORT [Suspect]
     Route: 048
     Dates: start: 20080901

REACTIONS (12)
  - ANORGASMIA [None]
  - ANXIETY [None]
  - DIZZINESS [None]
  - DRUG INTERACTION [None]
  - DRY MOUTH [None]
  - EMOTIONAL DISORDER [None]
  - FOREIGN BODY TRAUMA [None]
  - LIBIDO DECREASED [None]
  - LOSS OF LIBIDO [None]
  - NAUSEA [None]
  - PALPITATIONS [None]
  - SEXUAL DYSFUNCTION [None]
